FAERS Safety Report 10365545 (Version 1)
Quarter: 2014Q3

REPORT INFORMATION
  Report Type: Spontaneous
  Country: US (occurrence: None)
  Receive Date: 20140805
  Receipt Date: 20140805
  Transmission Date: 20150326
  Serious: Yes (Other)
  Sender: FDA-Public Use
  Company Number: None

PATIENT
  Age: 20 Year
  Sex: Female
  Weight: 53.98 kg

DRUGS (3)
  1. CEFTIN [Concomitant]
     Active Substance: CEFUROXIME AXETIL
  2. MULTIVITAMIN [Concomitant]
     Active Substance: VITAMINS
  3. XARELTO [Suspect]
     Active Substance: RIVAROXABAN
     Indication: ANTICOAGULANT THERAPY
     Dosage: 1 PILL BID ORAL
     Route: 048
     Dates: start: 20140804

REACTIONS (1)
  - Haematuria [None]

NARRATIVE: CASE EVENT DATE: 20140801
